FAERS Safety Report 6483790-6 (Version None)
Quarter: 2009Q4

REPORT INFORMATION
  Report Type: 
  Country: None (occurrence: None)
  Receive Date: 20091209
  Receipt Date: 20090812
  Transmission Date: 20100525
  Serious: No
  Sender: FDA-Public Use
  Company Number: US-AMGEN-KDL345675

PATIENT
  Sex: Male

DRUGS (3)
  1. ENBREL [Suspect]
     Indication: RHEUMATOID ARTHRITIS
     Route: 058
     Dates: start: 20051101
  2. METHOTREXATE [Concomitant]
     Route: 048
     Dates: start: 20090301
  3. PREDNISONE [Concomitant]

REACTIONS (7)
  - ARTHRALGIA [None]
  - JOINT SWELLING [None]
  - LOCAL SWELLING [None]
  - NECK PAIN [None]
  - OEDEMA PERIPHERAL [None]
  - PAIN IN EXTREMITY [None]
  - SYNOVITIS [None]
